FAERS Safety Report 7939178-1 (Version None)
Quarter: 2011Q4

REPORT INFORMATION
  Report Type: 
  Country: None (occurrence: None)
  Receive Date: 20111124
  Receipt Date: 20111121
  Transmission Date: 20120403
  Serious: Yes (Hospitalization)
  Sender: FDA-Public Use
  Company Number: GB-BRISTOL-MYERS SQUIBB COMPANY-16243909

PATIENT
  Age: 27 Year
  Sex: Male

DRUGS (3)
  1. ZOPICLONE [Concomitant]
     Route: 065
  2. ABILIFY [Suspect]
     Indication: PSYCHOTIC DISORDER
     Dosage: STARTED AS 10 MG THEN INCREASED TO 15MG
     Route: 048
     Dates: start: 20070926
  3. MIRTAZAPINE [Concomitant]
     Route: 065

REACTIONS (1)
  - IMMOBILE [None]
